FAERS Safety Report 14821128 (Version 1)
Quarter: 2018Q2

REPORT INFORMATION
  Report Type: Spontaneous
  Country: US (occurrence: US)
  Receive Date: 20180427
  Receipt Date: 20180427
  Transmission Date: 20180711
  Serious: No
  Sender: FDA-Public Use
  Company Number: US-BAYER-2018-074228

PATIENT
  Age: 85 Year
  Sex: Male
  Weight: 82 kg

DRUGS (13)
  1. MIRALAX [Suspect]
     Active Substance: POLYETHYLENE GLYCOL 3350
     Indication: GASTROINTESTINAL DISORDER
     Route: 048
  2. FISH OIL [Concomitant]
     Active Substance: FISH OIL
  3. SELENIUM [Concomitant]
     Active Substance: SELENIUM
  4. CALTRATE [Concomitant]
     Active Substance: CALCIUM CARBONATE
  5. LECITHIN [Concomitant]
     Active Substance: LECITHIN
  6. COQ10 [Concomitant]
     Active Substance: UBIDECARENONE
     Dosage: UNK
  7. BIOTIN [Concomitant]
     Active Substance: BIOTIN
  8. MAGNESIUM [MAGNESIUM] [Concomitant]
  9. VITAMIN D3 [Concomitant]
     Active Substance: CHOLECALCIFEROL
  10. CENTRUM SILVER [Concomitant]
     Active Substance: MINERALS\VITAMINS
  11. VITAMIN B6 [Concomitant]
     Active Substance: PYRIDOXINE HYDROCHLORIDE
  12. MILK OF MAGNESIA CHERRY [Suspect]
     Active Substance: MAGNESIUM HYDROXIDE
     Dosage: 3 TABLESPOONS EVERY 3 DAYS TABLESPOONC
     Route: 048
  13. VITAMIN C [Concomitant]
     Active Substance: ASCORBIC ACID

REACTIONS (5)
  - Drug ineffective [Unknown]
  - Incorrect drug administration duration [Unknown]
  - Drug ineffective [Unknown]
  - Product use issue [Unknown]
  - Drug effect delayed [Unknown]

NARRATIVE: CASE EVENT DATE: 2018
